FAERS Safety Report 21423963 (Version 1)
Quarter: 2022Q4

REPORT INFORMATION
  Report Type: Report from Study
  Country: US (occurrence: None)
  Receive Date: 20221007
  Receipt Date: 20221007
  Transmission Date: 20230113
  Serious: Yes (Hospitalization)
  Sender: FDA-Public Use
  Company Number: US-Eisai Medical Research-EC-2022-121818

PATIENT
  Age: 74 Year
  Sex: Female

DRUGS (2)
  1. LENVIMA [Suspect]
     Active Substance: LENVATINIB
     Indication: Endometrial cancer
     Route: 048
     Dates: start: 20220808, end: 202208
  2. LENVIMA [Suspect]
     Active Substance: LENVATINIB
     Indication: Uterine cancer
     Route: 048
     Dates: start: 202208, end: 2022

REACTIONS (7)
  - Heart rate increased [Not Recovered/Not Resolved]
  - Pain [Recovering/Resolving]
  - Arthralgia [Recovering/Resolving]
  - Fatigue [Recovering/Resolving]
  - Bedridden [Recovering/Resolving]
  - Hypertension [Recovering/Resolving]
  - Hypoglycaemia [Recovered/Resolved]

NARRATIVE: CASE EVENT DATE: 20220101
